FAERS Safety Report 8243421-1 (Version None)
Quarter: 2012Q1

REPORT INFORMATION
  Report Type: 
  Country: None (occurrence: None)
  Receive Date: 20120329
  Receipt Date: 20120321
  Transmission Date: 20120608
  Serious: Yes (Other)
  Sender: FDA-Public Use
  Company Number: ES-ROCHE-1051345

PATIENT
  Sex: Female

DRUGS (4)
  1. PEGASYS [Suspect]
     Indication: HEPATITIS C
     Route: 058
     Dates: start: 20120201
  2. RIBAVIRIN [Suspect]
     Dates: start: 20120302
  3. RIBAVIRIN [Suspect]
     Indication: HEPATITIS C
     Dates: start: 20120201, end: 20120302
  4. VICTRELIS [Suspect]
     Indication: HEPATITIS C
     Dates: start: 20120302, end: 20120307

REACTIONS (2)
  - HYPONATRAEMIA [None]
  - ANAEMIA [None]
